FAERS Safety Report 9031851 (Version 1)
Quarter: 2013Q1

REPORT INFORMATION
  Report Type: Spontaneous
  Country: FI (occurrence: FI)
  Receive Date: 20130124
  Receipt Date: 20130124
  Transmission Date: 20140127
  Serious: Yes (Hospitalization, Other)
  Sender: FDA-Public Use
  Company Number: FI-ELI_LILLY_AND_COMPANY-FI201301003981

PATIENT
  Sex: Female

DRUGS (4)
  1. FORSTEO [Suspect]
     Indication: OSTEOPOROSIS
     Dosage: 20 UG, QD
     Dates: start: 20110112
  2. PANADOL [Concomitant]
     Indication: PAIN
  3. SIRDALUD [Concomitant]
     Indication: MUSCLE SPASMS
  4. CALCIUM + VITAMIN D [Concomitant]
     Indication: MEDICAL DIET

REACTIONS (3)
  - Femur fracture [Unknown]
  - Fall [Unknown]
  - Dizziness [Unknown]
